FAERS Safety Report 24789349 (Version 2)
Quarter: 2025Q1

REPORT INFORMATION
  Report Type: Spontaneous
  Country: AT (occurrence: AT)
  Receive Date: 20241230
  Receipt Date: 20250117
  Transmission Date: 20250409
  Serious: Yes (Other)
  Sender: GUERBET
  Company Number: AT-GUERBET/GUERBET AUSTRIA-AT-20240008

PATIENT
  Age: 75 Year
  Sex: Male
  Weight: 75 kg

DRUGS (3)
  1. LIPIODOL [Suspect]
     Active Substance: ETHIODIZED OIL
     Indication: Lumbar artery embolisation
     Dosage: MIXTURE OF GLUBRAN 2 AND LIPIODOL IN A DILUTION RATIO OF 1:3
     Route: 013
     Dates: start: 20240324, end: 20240324
  2. DEVICE [Suspect]
     Active Substance: DEVICE
     Indication: Angiogram
     Route: 013
     Dates: start: 20240324, end: 20240324
  3. ULTRAVIST [Concomitant]
     Active Substance: IOPROMIDE
     Indication: Angiogram
     Route: 013
     Dates: start: 20240324, end: 20240324

REACTIONS (2)
  - Product use in unapproved indication [Recovered/Resolved with Sequelae]
  - Bone infarction [Recovered/Resolved with Sequelae]

NARRATIVE: CASE EVENT DATE: 20240324
